FAERS Safety Report 16819776 (Version 1)
Quarter: 2019Q3

REPORT INFORMATION
  Report Type: Spontaneous
  Country: CA (occurrence: CA)
  Receive Date: 20190917
  Receipt Date: 20190917
  Transmission Date: 20191005
  Serious: Yes (Other)
  Sender: FDA-Public Use
  Company Number: CA-B.I. PHARMACEUTICALS,INC./RIDGEFIELD-2019-BI-102214

PATIENT
  Age: 55 Year
  Sex: Female

DRUGS (4)
  1. SALBUTAMOL SULFATE [Suspect]
     Active Substance: ALBUTEROL SULFATE
     Indication: PRODUCT USED FOR UNKNOWN INDICATION
     Route: 065
  2. SPIRIVA [Suspect]
     Active Substance: TIOTROPIUM BROMIDE MONOHYDRATE
     Indication: PRODUCT USED FOR UNKNOWN INDICATION
     Route: 065
  3. SYMBICORT [Suspect]
     Active Substance: BUDESONIDE\FORMOTEROL FUMARATE DIHYDRATE
     Indication: PRODUCT USED FOR UNKNOWN INDICATION
     Dosage: POWDER
     Route: 065
  4. SINGULAIR [Suspect]
     Active Substance: MONTELUKAST SODIUM
     Indication: PRODUCT USED FOR UNKNOWN INDICATION
     Route: 065

REACTIONS (16)
  - Asthma [Recovered/Resolved]
  - Influenza like illness [Recovered/Resolved]
  - Chills [Recovered/Resolved]
  - Eosinophil count abnormal [Recovered/Resolved]
  - Therapeutic product effect incomplete [Recovered/Resolved]
  - Arthralgia [Recovered/Resolved]
  - Rheumatoid arthritis [Recovered/Resolved]
  - Upper respiratory tract congestion [Recovered/Resolved]
  - Asthenia [Recovered/Resolved]
  - Wheezing [Recovered/Resolved]
  - Sputum discoloured [Recovered/Resolved]
  - Cough [Recovered/Resolved]
  - Malaise [Recovered/Resolved]
  - Rhinitis [Recovered/Resolved]
  - Tremor [Recovered/Resolved]
  - Productive cough [Recovered/Resolved]
